FAERS Safety Report 21925359 (Version 1)
Quarter: 2023Q1

REPORT INFORMATION
  Report Type: Spontaneous
  Country: CA (occurrence: CA)
  Receive Date: 20230130
  Receipt Date: 20230130
  Transmission Date: 20230418
  Serious: Yes (Other)
  Sender: FDA-Public Use
  Company Number: CA-ORGANON-O2301CAN002548

PATIENT
  Age: 50 Year
  Sex: Female
  Weight: 56 kg

DRUGS (1)
  1. REMERON [Suspect]
     Active Substance: MIRTAZAPINE
     Indication: Anxiety
     Dosage: 15 MILLIGRAM, 1 EVERY 1 DAYS
     Route: 048

REACTIONS (2)
  - Abdominal distension [Unknown]
  - Product use in unapproved indication [Unknown]
